FAERS Safety Report 17541459 (Version 10)
Quarter: 2020Q3

REPORT INFORMATION
  Report Type: Report from Study
  Country: JP (occurrence: JP)
  Receive Date: 20200313
  Receipt Date: 20200625
  Transmission Date: 20201104
  Serious: Yes (Hospitalization)
  Sender: FDA-Public Use
  Company Number: JP-DSJP-DSJ-2020-107578

PATIENT

DRUGS (78)
  1. TRASTUZUMAB DERUXTECAN. [Suspect]
     Active Substance: TRASTUZUMAB DERUXTECAN
     Dosage: 4.4 MG/KG, ONCE EVERY 3 WK
     Route: 041
     Dates: start: 20191001, end: 20191001
  2. TRASTUZUMAB DERUXTECAN. [Suspect]
     Active Substance: TRASTUZUMAB DERUXTECAN
     Dosage: 4.4 MG/KG, ONCE EVERY 3 WK
     Route: 041
     Dates: start: 20191128, end: 20200220
  3. FERROUS SODIUM CITRATE [Concomitant]
     Active Substance: SODIUM FERROUS CITRATE
     Indication: ANAEMIA
     Dosage: 100 MG, QD
     Route: 048
     Dates: start: 20190313, end: 20190717
  4. BETAMETHASONE VALERATE. [Concomitant]
     Active Substance: BETAMETHASONE VALERATE
     Indication: CYSTITIS HAEMORRHAGIC
     Dosage: 1 DF, SINGLE
     Route: 026
     Dates: start: 20190605, end: 20190605
  5. CARBAZOCHROME SODIUM SULFONATE [Concomitant]
     Active Substance: CARBAZOCHROME SODIUM SULFONATE
     Dosage: 50 MG, SINGLE
     Route: 042
     Dates: start: 20200513, end: 20200513
  6. ERYTHROCYTES [Concomitant]
     Active Substance: HUMAN RED BLOOD CELL
     Dosage: 2 IU, SINGLE
     Route: 042
     Dates: start: 20200513, end: 20200513
  7. ERYTHROCYTES [Concomitant]
     Active Substance: HUMAN RED BLOOD CELL
     Dosage: 2 IU, SINGLE
     Route: 042
     Dates: start: 20200518, end: 20200518
  8. PENTAZOCINE [Concomitant]
     Active Substance: PENTAZOCINE
     Indication: CYSTITIS HAEMORRHAGIC
     Dosage: 15 MG, SINGLE
     Route: 042
     Dates: start: 20190605, end: 20190605
  9. TRASTUZUMAB DERUXTECAN. [Suspect]
     Active Substance: TRASTUZUMAB DERUXTECAN
     Indication: HER2 POSITIVE BREAST CANCER
     Dosage: 5.4 MG/KG, ONCE EVERY 3 WK
     Route: 041
     Dates: start: 20190404, end: 20190606
  10. TRANEXAMIC ACID. [Concomitant]
     Active Substance: TRANEXAMIC ACID
     Dosage: 10 ML, QD
     Route: 042
     Dates: start: 20200327, end: 20200327
  11. ERYTHROCYTES [Concomitant]
     Active Substance: HUMAN RED BLOOD CELL
     Indication: HAEMORRHOIDAL HAEMORRHAGE
     Dosage: 4 IU, SINGLE
     Route: 042
     Dates: start: 20200328, end: 20200328
  12. PHYSIO 140 [Concomitant]
     Active Substance: CALCIUM GLUCONATE\DEXTROSE\MAGNESIUM CHLORIDE\POTASSIUM CHLORIDE\SODIUM ACETATE\SODIUM CHLORIDE\TRISODIUM CITRATE DIHYDRATE
     Indication: CYSTITIS HAEMORRHAGIC
     Dosage: 0.5 L, SINGLE
     Route: 042
     Dates: start: 20190611, end: 20190611
  13. PHENYLEPHRINE HYDROCHLORIDE. [Concomitant]
     Active Substance: PHENYLEPHRINE HYDROCHLORIDE
     Indication: CYSTITIS HAEMORRHAGIC
     Dosage: 0.4 MG, SINGLE
     Route: 042
     Dates: start: 20190611, end: 20190611
  14. SODIUM HYALURONATE [Concomitant]
     Active Substance: HYALURONATE SODIUM
     Indication: DRY EYE
     Dosage: 1 DROP, 5?6 TIMES PER DAY
     Route: 031
     Dates: start: 20190401
  15. FERROUS SODIUM CITRATE [Concomitant]
     Active Substance: SODIUM FERROUS CITRATE
     Dosage: 100 MG, QD
     Route: 048
     Dates: start: 20190622, end: 20190717
  16. WHITE PETROLATUM [Concomitant]
     Active Substance: PETROLATUM
     Indication: PROPHYLAXIS
     Dosage: PROPER QUANTITIY, QD
     Route: 062
     Dates: start: 20190312
  17. METOCLOPRAMIDE HYDROCHLORIDE. [Concomitant]
     Active Substance: METOCLOPRAMIDE HYDROCHLORIDE
     Indication: ANAEMIA
     Dosage: 10 MG, AS NEEDED
     Route: 042
     Dates: start: 20190607, end: 20190609
  18. TRANEXAMIC ACID. [Concomitant]
     Active Substance: TRANEXAMIC ACID
     Indication: HAEMORRHOIDAL HAEMORRHAGE
     Dosage: 0.01 L, QD
     Route: 042
     Dates: start: 20200228, end: 20200301
  19. SOLDEM 3A [Concomitant]
     Active Substance: CARBOHYDRATES\POTASSIUM CHLORIDE\SODIUM CHLORIDE\SODIUM LACTATE
     Indication: CYSTITIS HAEMORRHAGIC
     Dosage: 0.1 L, QD
     Route: 042
     Dates: start: 20190608, end: 20190614
  20. GLYCERIN                           /00200601/ [Concomitant]
     Active Substance: GLYCERIN
     Indication: TRANSURETHRAL BLADDER RESECTION
     Dosage: 0.06 L, SINGLE
     Route: 054
     Dates: start: 20190610, end: 20190610
  21. SUGAMMADEX SODIUM [Concomitant]
     Active Substance: SUGAMMADEX SODIUM
     Indication: CYSTITIS HAEMORRHAGIC
     Dosage: 200 MG, SINGLE
     Route: 042
     Dates: start: 20190611, end: 20190611
  22. TRASTUZUMAB DERUXTECAN. [Suspect]
     Active Substance: TRASTUZUMAB DERUXTECAN
     Dosage: 4.4 MG/KG, ONCE EVERY 3 WK
     Route: 041
     Dates: start: 20190718, end: 20190829
  23. TRASTUZUMAB DERUXTECAN. [Suspect]
     Active Substance: TRASTUZUMAB DERUXTECAN
     Dosage: 3.2 MG/KG, ONCE EVERY 3 WK
     Route: 041
     Dates: start: 20200526, end: 20200526
  24. REBAMIPIDE [Concomitant]
     Active Substance: REBAMIPIDE
     Indication: PROPHYLAXIS
     Dosage: 100 MG, AS NEEDED
     Route: 048
     Dates: start: 2016
  25. ACETAMINOPHEN. [Concomitant]
     Active Substance: ACETAMINOPHEN
     Indication: CANCER PAIN
     Dosage: 1000 MG, QD
     Route: 042
     Dates: start: 20200229, end: 20200229
  26. CARBAZOCHROME SODIUM SULFONATE [Concomitant]
     Active Substance: CARBAZOCHROME SODIUM SULFONATE
     Dosage: 50 MG, BID
     Route: 042
     Dates: start: 20200424, end: 20200425
  27. PLATELETS [Concomitant]
     Active Substance: HUMAN PLATELET, ALLOGENIC
     Indication: PLATELET COUNT DECREASED
     Dosage: 1 IU, AS NEEDED
     Route: 042
     Dates: start: 20190610, end: 20190614
  28. ERYTHROCYTES [Concomitant]
     Active Substance: HUMAN RED BLOOD CELL
     Indication: ANAEMIA POSTOPERATIVE
     Dosage: 2 IU, SINGLE
     Route: 042
     Dates: start: 20190622, end: 20190622
  29. INDIGO CARMINE [Concomitant]
     Active Substance: INDIGOTINDISULFONATE SODIUM
     Indication: CYSTITIS HAEMORRHAGIC
     Dosage: 1 DF, SINGLE
     Route: 042
     Dates: start: 20190611, end: 20190611
  30. VEEN?F [Concomitant]
     Active Substance: CALCIUM CHLORIDE\MAGNESIUM CHLORIDE\POTASSIUM CHLORIDE\SODIUM ACETATE\SODIUM CHLORIDE
     Indication: CYSTITIS HAEMORRHAGIC
     Dosage: 0.5 L, SINGLE
     Route: 042
     Dates: start: 20190611, end: 20190611
  31. ROCURONIUM BROMIDE. [Concomitant]
     Active Substance: ROCURONIUM BROMIDE
     Indication: CYSTITIS HAEMORRHAGIC
     Dosage: 30 MG, SINGLE
     Route: 042
     Dates: start: 20190611, end: 20190611
  32. VALSARTAN. [Concomitant]
     Active Substance: VALSARTAN
     Indication: HYPERTENSION
     Dosage: 80 MG, QD
     Route: 048
     Dates: start: 20191223
  33. TRANEXAMIC ACID. [Concomitant]
     Active Substance: TRANEXAMIC ACID
     Indication: HAEMORRHAGE PROPHYLAXIS
     Dosage: 250 MG, TID
     Route: 048
     Dates: start: 20200120
  34. ACETAMINOPHEN. [Concomitant]
     Active Substance: ACETAMINOPHEN
     Dosage: 1000 MG, QD
     Route: 042
     Dates: start: 20200327, end: 20200327
  35. TRANEXAMIC ACID. [Concomitant]
     Active Substance: TRANEXAMIC ACID
     Indication: CYSTITIS HAEMORRHAGIC
     Dosage: 0.01 L, QD
     Route: 042
     Dates: start: 20190607, end: 20190613
  36. TRANEXAMIC ACID. [Concomitant]
     Active Substance: TRANEXAMIC ACID
     Dosage: 10 ML, BID
     Route: 042
     Dates: start: 20200328, end: 20200331
  37. TRANEXAMIC ACID. [Concomitant]
     Active Substance: TRANEXAMIC ACID
     Dosage: 0.01 L, BID
     Route: 042
     Dates: start: 20200424, end: 20200425
  38. TRANEXAMIC ACID. [Concomitant]
     Active Substance: TRANEXAMIC ACID
     Dosage: 0.01 L, BID
     Route: 042
     Dates: start: 20200513, end: 20200513
  39. ACETAMINOPHEN. [Concomitant]
     Active Substance: ACETAMINOPHEN
     Indication: CANCER PAIN
     Dosage: 600 MG, AS NEEDED
     Route: 048
     Dates: start: 20190622
  40. BUPIVACAINE HYDROCHLORIDE. [Concomitant]
     Active Substance: BUPIVACAINE HYDROCHLORIDE
     Indication: HIP FRACTURE
     Dosage: 2.6 ML, SINGLE
     Route: 042
     Dates: start: 20190621, end: 20190621
  41. TRASTUZUMAB DERUXTECAN. [Suspect]
     Active Substance: TRASTUZUMAB DERUXTECAN
     Dosage: 3.2 MG/KG, ONCE EVERY 3 WK
     Route: 041
     Dates: start: 20200312, end: 20200423
  42. MAGNESIUM OXIDE. [Concomitant]
     Active Substance: MAGNESIUM OXIDE
     Indication: CONSTIPATION
     Dosage: 330 MG, AS NEEDED
     Route: 048
     Dates: start: 2016
  43. BETAMETHASONE VALERATE. [Concomitant]
     Active Substance: BETAMETHASONE VALERATE
     Indication: ECZEMA
     Dosage: PROPER QUANTITIY, AS NEEDED
     Route: 062
     Dates: start: 20190411, end: 20190606
  44. SOLULACT [Concomitant]
     Dosage: 1000 ML, QD
     Route: 042
     Dates: start: 20200327, end: 20200329
  45. FILGRASTIM [Concomitant]
     Active Substance: FILGRASTIM
     Indication: NEUTROPHIL COUNT DECREASED
     Dosage: 75 UG, QD
     Route: 058
     Dates: start: 20190614, end: 20190619
  46. CEFOTIAM HYDROCHLORIDE [Concomitant]
     Active Substance: CEFOTIAM HYDROCHLORIDE
     Indication: ANTIBIOTIC THERAPY
     Dosage: 5 G, QD
     Route: 042
     Dates: start: 20190621, end: 20190622
  47. CARBAZOCHROME SODIUM SULFONATE [Concomitant]
     Active Substance: CARBAZOCHROME SODIUM SULFONATE
     Indication: HAEMORRHAGE PROPHYLAXIS
     Dosage: 30 MG, TID
     Route: 048
     Dates: start: 20200120
  48. TRASTUZUMAB DERUXTECAN. [Suspect]
     Active Substance: TRASTUZUMAB DERUXTECAN
     Dosage: 4.4 MG/KG, ONCE EVERY 3 WK
     Route: 041
     Dates: start: 20191030, end: 20191030
  49. FESOTERODINE FUMARATE. [Concomitant]
     Active Substance: FESOTERODINE FUMARATE
     Indication: HYPERTONIC BLADDER
     Dosage: 4 MG, QD
     Route: 048
     Dates: start: 20171111, end: 201905
  50. METRONIDAZOLE. [Concomitant]
     Active Substance: METRONIDAZOLE
     Indication: PROPHYLAXIS
     Dosage: PROPER QUANTITIY, QD
     Route: 062
     Dates: start: 20190129, end: 201903
  51. ACETAMINOPHEN. [Concomitant]
     Active Substance: ACETAMINOPHEN
     Indication: CYSTITIS HAEMORRHAGIC
     Dosage: 1000 MG, AS NEEDED
     Route: 042
     Dates: start: 20190608, end: 20190611
  52. NACL [Concomitant]
     Active Substance: SODIUM CHLORIDE
     Indication: CYSTITIS HAEMORRHAGIC
     Dosage: 1 L, QD
     Route: 042
     Dates: start: 20190607, end: 20190614
  53. SOLULACT [Concomitant]
     Indication: CYSTITIS HAEMORRHAGIC
     Dosage: 1 L, AS NEEDED
     Route: 042
     Dates: start: 20190607, end: 20190611
  54. CARBAZOCHROME SODIUM SULFONATE [Concomitant]
     Active Substance: CARBAZOCHROME SODIUM SULFONATE
     Indication: HAEMORRHOIDAL HAEMORRHAGE
     Dosage: 50 MG, QD
     Route: 042
     Dates: start: 20200228, end: 20200301
  55. CARBAZOCHROME SODIUM SULFONATE [Concomitant]
     Active Substance: CARBAZOCHROME SODIUM SULFONATE
     Dosage: 50 MG, BID
     Route: 042
     Dates: start: 20200328, end: 20200331
  56. SOLDEM 3A [Concomitant]
     Active Substance: CARBOHYDRATES\POTASSIUM CHLORIDE\SODIUM CHLORIDE\SODIUM LACTATE
     Indication: FLUID REPLACEMENT
     Dosage: 0.5 L, QD
     Route: 042
     Dates: start: 20200513, end: 20200514
  57. ALBUMIN [Concomitant]
     Active Substance: ALBUMIN HUMAN
     Indication: NEUTROPHIL COUNT DECREASED
     Dosage: 0.1 L, SINGLE
     Route: 042
     Dates: start: 20190610, end: 20190610
  58. FUROSEMIDE. [Concomitant]
     Active Substance: FUROSEMIDE
     Indication: TRANSURETHRAL BLADDER RESECTION
     Dosage: 10 MG, SINGLE
     Route: 042
     Dates: start: 20190610, end: 20190610
  59. FENTANYL CITRATE. [Concomitant]
     Active Substance: FENTANYL CITRATE
     Indication: CYSTITIS HAEMORRHAGIC
     Dosage: 100 UG, SINGLE
     Route: 042
     Dates: start: 20190611, end: 20190611
  60. REMIFENTANIL HYDROCHLORIDE. [Concomitant]
     Active Substance: REMIFENTANIL HYDROCHLORIDE
     Indication: CYSTITIS HAEMORRHAGIC
     Dosage: 1.68 ML, SINGLE
     Route: 042
     Dates: start: 20190611, end: 20190611
  61. VOLUVEN [Concomitant]
     Active Substance: HYDROXYETHYL STARCH 130/0.4
     Indication: SURGERY
     Dosage: 0.4 L, QD
     Route: 042
     Dates: start: 20190621, end: 201906
  62. EPHEDRINE HYDROCHLORIDE [Concomitant]
     Active Substance: EPHEDRINE HYDROCHLORIDE
     Indication: HIP FRACTURE
     Dosage: 2 MG, SINGLE
     Route: 042
     Dates: start: 20190621, end: 20190621
  63. IOPAMIDOL [Concomitant]
     Active Substance: IOPAMIDOL
     Indication: SCAN WITH CONTRAST
     Dosage: 0.1 L, PER 6 WEEKS
     Route: 042
     Dates: start: 20190328
  64. LOXOPROFEN SODIUM [Concomitant]
     Active Substance: LOXOPROFEN SODIUM
     Indication: CANCER PAIN
     Dosage: 60 MG, AS NEEDED
     Route: 048
     Dates: start: 2016
  65. V ROHTO [Concomitant]
     Indication: SUBCONJUNCTIVAL INJECTION PROCEDURE
     Dosage: 1 DROP, 5?6 TIMES PER DAY
     Route: 031
     Dates: start: 20190321, end: 20190401
  66. BORRAGINOL A                       /01370101/ [Concomitant]
     Indication: HAEMORRHOIDS
     Dosage: 1 DF, AS NEEDED
     Route: 054
     Dates: start: 20190411, end: 20190411
  67. ENSURE [Concomitant]
     Active Substance: AMINO ACIDS\DEXTROSE\ELECTROLYTES NOS\SOYBEAN OIL\VITAMINS
     Indication: HYPOALBUMINAEMIA
     Dosage: 0.25 L, QD
     Route: 048
     Dates: start: 20190418, end: 201905
  68. SOLULACT [Concomitant]
     Indication: FLUID REPLACEMENT
     Dosage: 1 L, QD
     Route: 042
     Dates: start: 20200229, end: 20200301
  69. SOLULACT [Concomitant]
     Dosage: 1 L, SINGLE
     Route: 042
     Dates: start: 20200424, end: 20200424
  70. CARBAZOCHROME SODIUM SULFONATE [Concomitant]
     Active Substance: CARBAZOCHROME SODIUM SULFONATE
     Indication: CYSTITIS HAEMORRHAGIC
     Dosage: 50 MG, QD
     Route: 042
     Dates: start: 20190607, end: 20190613
  71. CARBAZOCHROME SODIUM SULFONATE [Concomitant]
     Active Substance: CARBAZOCHROME SODIUM SULFONATE
     Dosage: 50 MG, QD
     Route: 042
     Dates: start: 20200327, end: 20200327
  72. LEVOFLOXACIN HEMIHYDRATE [Concomitant]
     Active Substance: LEVOFLOXACIN
     Indication: PYELONEPHRITIS
     Dosage: 500 MG, AS NEEDED
     Route: 048
     Dates: start: 20190607, end: 20190613
  73. CEFEPIME DIHYDROCHLORIDE [Concomitant]
     Active Substance: CEFEPIME HYDROCHLORIDE
     Indication: PYELONEPHRITIS
     Dosage: 1 G, QD
     Route: 042
     Dates: start: 20190608, end: 20190616
  74. ACETAMINOPHEN. [Concomitant]
     Active Substance: ACETAMINOPHEN
     Indication: CYSTITIS HAEMORRHAGIC
     Dosage: 600 MG, AS NEEDED
     Route: 048
     Dates: start: 20190610, end: 20190616
  75. SENOSIDE [Concomitant]
     Indication: TRANSURETHRAL BLADDER RESECTION
     Dosage: 12 MG, AS NEEDED
     Route: 048
     Dates: start: 20190610, end: 20190610
  76. ERYTHROCYTES [Concomitant]
     Active Substance: HUMAN RED BLOOD CELL
     Indication: ANAEMIA
     Dosage: 2 IU, AS NEEDED
     Route: 042
     Dates: start: 20190608, end: 20190611
  77. HYDROXYZINE HYDROCHLORIDE. [Concomitant]
     Active Substance: HYDROXYZINE HYDROCHLORIDE
     Indication: ANAEMIA
     Dosage: 25 MG, AS NEEDED
     Route: 042
     Dates: start: 20190607, end: 20190609
  78. SOLYUGEN [Concomitant]
     Indication: FLUID REPLACEMENT
     Dosage: 2.5 L, QD
     Route: 042
     Dates: start: 20190621, end: 20190622

REACTIONS (1)
  - Cystitis haemorrhagic [Recovered/Resolved]

NARRATIVE: CASE EVENT DATE: 20200228
